FAERS Safety Report 13834137 (Version 1)
Quarter: 2017Q3

REPORT INFORMATION
  Report Type: Spontaneous
  Country: IT (occurrence: IT)
  Receive Date: 20170804
  Receipt Date: 20170804
  Transmission Date: 20171127
  Serious: Yes (Life-Threatening)
  Sender: FDA-Public Use
  Company Number: IT-SEBELA IRELAND LIMITED-2017SEB00356

PATIENT

DRUGS (4)
  1. PREDNISONE. [Concomitant]
     Active Substance: PREDNISONE
     Dosage: 5 MG, 1X/DAY
     Route: 048
  2. AZATHIOPRINE. [Suspect]
     Active Substance: AZATHIOPRINE
     Indication: AUTOIMMUNE PANCREATITIS
     Dosage: 25-50 MG PER DAY AND INCREASED BY 25 MG EVERY 3-7 DAYS
     Route: 065
  3. PREDNISONE. [Concomitant]
     Active Substance: PREDNISONE
     Indication: AUTOIMMUNE PANCREATITIS
     Dosage: 1 MG/KG OF BODY WEIGHT PER DAY
     Route: 065
  4. PREDNISONE. [Concomitant]
     Active Substance: PREDNISONE
     Dosage: ^TAPERED BY 5 MG EVERY WEEK UP TO SUSPENSION^
     Route: 065

REACTIONS (1)
  - Anaphylactic shock [Unknown]
